FAERS Safety Report 6350083-7 (Version None)
Quarter: 2009Q3

REPORT INFORMATION
  Report Type: 
  Country: None (occurrence: None)
  Receive Date: 20090911
  Receipt Date: 20090622
  Transmission Date: 20100115
  Serious: No
  Sender: FDA-Public Use
  Company Number: US-ABBOTT-06P-163-0350993-00

PATIENT
  Sex: Female
  Weight: 69.462 kg

DRUGS (6)
  1. HUMIRA [Suspect]
     Indication: RHEUMATOID ARTHRITIS
     Route: 058
     Dates: start: 20060901
  2. HUMIRA [Suspect]
     Route: 058
     Dates: start: 20050705, end: 20060901
  3. ESOMEPRAZOLE [Concomitant]
     Indication: GASTROOESOPHAGEAL REFLUX DISEASE
     Route: 048
  4. ATACANOL HCT [Concomitant]
     Indication: BLOOD PRESSURE
     Route: 048
  5. TYRIDOXINE [Concomitant]
     Indication: VITAMIN SUPPLEMENTATION
     Route: 048
  6. ISONIAZID [Concomitant]
     Indication: ANTIBIOTIC PROPHYLAXIS
     Route: 048

REACTIONS (2)
  - DRUG DELIVERY SYSTEM MALFUNCTION [None]
  - INCORRECT DOSE ADMINISTERED [None]
